FAERS Safety Report 6180082-X (Version None)
Quarter: 2009Q2

REPORT INFORMATION
  Report Type: 
  Country: None (occurrence: None)
  Receive Date: 20090505
  Receipt Date: 20080117
  Transmission Date: 20091009
  Serious: No
  Sender: FDA-Public Use
  Company Number: CO-BAYER-200810692LA

PATIENT
  Age: 20 Year
  Sex: Female
  Weight: 50 kg

DRUGS (1)
  1. YASMIN [Suspect]
     Indication: ORAL CONTRACEPTION
     Dosage: 1 TABLET DAILY FOR 21 DAYS AND UNSPECIFIED INTERVALS BETWEEN PACKAGES
     Route: 048
     Dates: start: 20070110, end: 20080108

REACTIONS (3)
  - ABORTION INCOMPLETE [None]
  - PREGNANCY ON ORAL CONTRACEPTIVE [None]
  - UTERINE HAEMORRHAGE [None]
